FAERS Safety Report 5856841-7 (Version None)
Quarter: 2008Q3

REPORT INFORMATION
  Report Type: 
  Country: None (occurrence: None)
  Receive Date: 20080825
  Receipt Date: 20080814
  Transmission Date: 20090109
  Serious: Yes (Other)
  Sender: FDA-Public Use
  Company Number: AU-PFIZER INC-2008069167

PATIENT
  Age: 65 Year
  Sex: Female

DRUGS (8)
  1. CHANTIX [Suspect]
     Route: 048
  2. ADALAT [Concomitant]
  3. ASPIRIN [Concomitant]
  4. COVERSYL [Concomitant]
  5. CITALOPRAM HYDROBROMIDE [Concomitant]
  6. DRIXINE [Concomitant]
     Route: 045
  7. NEXIUM [Concomitant]
  8. NITRO-DUR [Concomitant]

REACTIONS (4)
  - DYSARTHRIA [None]
  - RESTLESSNESS [None]
  - SPEECH DISORDER [None]
  - TREMOR [None]
